FAERS Safety Report 5194728-6 (Version None)
Quarter: 2006Q4

REPORT INFORMATION
  Report Type: 
  Country: None (occurrence: None)
  Receive Date: 20061229
  Receipt Date: 20061220
  Transmission Date: 20070319
  Serious: Yes (Disabling)
  Sender: FDA-Public Use
  Company Number: PHBS2006IT19777

PATIENT
  Age: 46 Year
  Sex: Male

DRUGS (1)
  1. ZOMETA [Suspect]
     Indication: HYPERGAMMAGLOBULINAEMIA BENIGN MONOCLONAL
     Dosage: 4 MG, EVERY 1 MONTH
     Route: 042
     Dates: start: 20030501

REACTIONS (2)
  - OSTEITIS [None]
  - OSTEONECROSIS [None]
